FAERS Safety Report 8968808 (Version 1)
Quarter: 2012Q4

REPORT INFORMATION
  Report Type: 
  Country: US (occurrence: US)
  Receive Date: 20121217
  Receipt Date: 20121217
  Transmission Date: 20130627
  Serious: Yes (Hospitalization, Other)
  Sender: FDA-Public Use
  Company Number: US-ACTELION-A-US2012-67094

PATIENT
  Age: 74 Year
  Sex: Male

DRUGS (5)
  1. TRACLEER [Suspect]
     Indication: PULMONARY ARTERIAL HYPERTENSION
     Dosage: UNK
     Route: 048
     Dates: start: 20120524
  2. PLAVIX [Concomitant]
  3. ASPIRIN [Concomitant]
  4. NITROGLYCERIN [Concomitant]
  5. OXYGEN [Concomitant]

REACTIONS (8)
  - Anaemia [Unknown]
  - Haemoglobin abnormal [Unknown]
  - Transfusion [Unknown]
  - Haemorrhage [Unknown]
  - Synovial cyst [Unknown]
  - Haemoglobin decreased [Unknown]
  - Oedema peripheral [Unknown]
  - Dizziness [Unknown]
